FAERS Safety Report 12840336 (Version 1)
Quarter: 2016Q4

REPORT INFORMATION
  Report Type: Spontaneous
  Country: US (occurrence: US)
  Receive Date: 20161012
  Receipt Date: 20161012
  Transmission Date: 20170207
  Serious: Yes (Life-Threatening, Hospitalization, Other)
  Sender: FDA-Public Use
  Company Number: US-ELI_LILLY_AND_COMPANY-US201610002488

PATIENT
  Age: 36 Year
  Sex: Male

DRUGS (3)
  1. PEMETREXED [Suspect]
     Active Substance: PEMETREXED
     Indication: LUNG ADENOCARCINOMA STAGE IV
     Dosage: 500 MG/M2, CYCLICAL
     Route: 065
  2. BEVACIZUMAB [Concomitant]
     Active Substance: BEVACIZUMAB
     Indication: LUNG ADENOCARCINOMA STAGE IV
     Dosage: 15 MG/KG, CYCLICAL
     Route: 065
  3. CARBOPLATIN. [Concomitant]
     Active Substance: CARBOPLATIN
     Indication: LUNG ADENOCARCINOMA STAGE IV
     Dosage: 572.5 MG/M2, CYCLICAL
     Route: 065

REACTIONS (9)
  - Mucosal inflammation [Recovering/Resolving]
  - Tachycardia [Unknown]
  - Hypernatraemia [Recovered/Resolved]
  - Hypophagia [Unknown]
  - Hypovolaemia [Recovered/Resolved]
  - Off label use [Unknown]
  - Nephrogenic diabetes insipidus [Recovered/Resolved]
  - Diarrhoea [Unknown]
  - Glomerular filtration rate decreased [Recovered/Resolved]
